FAERS Safety Report 6379831-7 (Version None)
Quarter: 2009Q3

REPORT INFORMATION
  Report Type: 
  Country: None (occurrence: None)
  Receive Date: 20090917
  Receipt Date: 20090915
  Transmission Date: 20100115
  Serious: Yes (Other)
  Sender: FDA-Public Use
  Company Number: 2009020682

PATIENT
  Sex: Female
  Weight: 72.5755 kg

DRUGS (1)
  1. VIVAGLOBIN [Suspect]
     Indication: IMMUNODEFICIENCY COMMON VARIABLE
     Dosage: (8.32 GRAMS WEEKLY SUBCUTANEOUS)
     Route: 058
     Dates: start: 20070101

REACTIONS (1)
  - HERPES SIMPLEX [None]
